FAERS Safety Report 5036254-0 (Version None)
Quarter: 2006Q2

REPORT INFORMATION
  Report Type: 
  Country: None (occurrence: None)
  Receive Date: 20060531
  Receipt Date: 20060414
  Transmission Date: 20061013
  Serious: No
  Sender: FDA-Public Use
  Company Number: PHEH2006US04957

PATIENT
  Age: 67 Year
  Sex: Male

DRUGS (1)
  1. EXJADE [Suspect]
     Indication: BLOOD IRON INCREASED
     Dosage: 1500 MG, QD, ORAL
     Route: 048
     Dates: start: 20060323

REACTIONS (2)
  - CONDITION AGGRAVATED [None]
  - VISUAL ACUITY REDUCED [None]
